FAERS Safety Report 9969989 (Version 3)
Quarter: 2014Q2

REPORT INFORMATION
  Report Type: Spontaneous
  Country: AU (occurrence: AU)
  Receive Date: 20140306
  Receipt Date: 20140609
  Transmission Date: 20141212
  Serious: Yes (Death, Hospitalization, Other)
  Sender: FDA-Public Use
  Company Number: AU-CELGENEUS-008-21880-14023062

PATIENT
  Age: 76 Year
  Sex: Male

DRUGS (1)
  1. REVLIMID [Suspect]
     Indication: PLASMA CELL MYELOMA
     Dosage: 10 MILLIGRAM
     Route: 048
     Dates: start: 20131112

REACTIONS (5)
  - Pancytopenia [Unknown]
  - Death [Fatal]
  - General physical health deterioration [Fatal]
  - Urinary incontinence [Not Recovered/Not Resolved]
  - Urinary tract infection bacterial [Unknown]
